FAERS Safety Report 14571211 (Version 2)
Quarter: 2018Q1

REPORT INFORMATION
  Report Type: Spontaneous
  Country: US (occurrence: US)
  Receive Date: 20180226
  Receipt Date: 20180228
  Transmission Date: 20180509
  Serious: No
  Sender: FDA-Public Use
  Company Number: US-FRESENIUS KABI-FK201802110

PATIENT
  Age: 72 Year
  Sex: Male
  Weight: 106 kg

DRUGS (1)
  1. HEPARIN SODIUM INJECTION, USP [Suspect]
     Active Substance: HEPARIN SODIUM
     Indication: PRODUCT USED FOR UNKNOWN INDICATION
     Route: 065

REACTIONS (1)
  - Therapeutic response decreased [Recovered/Resolved]

NARRATIVE: CASE EVENT DATE: 20180220
